FAERS Safety Report 5134115-X (Version None)
Quarter: 2006Q4

REPORT INFORMATION
  Report Type: 
  Country: None (occurrence: None)
  Receive Date: 20061024
  Receipt Date: 20061016
  Transmission Date: 20070319
  Serious: Yes (Death, Hospitalization)
  Sender: FDA-Public Use
  Company Number: FR-AVENTIS-200613670FR

PATIENT
  Sex: Male

DRUGS (3)
  1. KETEK [Suspect]
     Indication: LUNG DISORDER
  2. ANTITHROMBOTIC AGENTS [Suspect]
  3. CORDARONE                          /00133101/ [Concomitant]

REACTIONS (3)
  - DEATH [None]
  - HAEMORRHAGE [None]
  - INTERNATIONAL NORMALISED RATIO INCREASED [None]
